FAERS Safety Report 9415643 (Version 1)
Quarter: 2013Q3

REPORT INFORMATION
  Report Type: Spontaneous
  Country: ES (occurrence: ES)
  Receive Date: 20130723
  Receipt Date: 20130723
  Transmission Date: 20140515
  Serious: Yes (Hospitalization)
  Sender: FDA-Public Use
  Company Number: ES-BAYER-2013-086602

PATIENT
  Age: 69 Year
  Sex: Female

DRUGS (5)
  1. ADIRO 300 [Suspect]
  2. ADIRO 100 [Suspect]
  3. SIMVASTATIN [Concomitant]
  4. CARVEDILOL [Concomitant]
  5. CANDESARTAN CILEXETIL W/HYDROCHLOROTHIAZIDE [Concomitant]

REACTIONS (2)
  - Extrasystoles [None]
  - Amnesia [None]
